FAERS Safety Report 5171347-9 (Version None)
Quarter: 2006Q4

REPORT INFORMATION
  Report Type: 
  Country: None (occurrence: None)
  Receive Date: 20061213
  Receipt Date: 20060116
  Transmission Date: 20070319
  Serious: Yes (Disabling, Other)
  Sender: FDA-Public Use
  Company Number: US-AMGEN-US165117

PATIENT
  Sex: Female
  Weight: 67.2 kg

DRUGS (3)
  1. ENBREL [Suspect]
     Indication: PSORIATIC ARTHROPATHY
     Route: 058
     Dates: start: 20030501, end: 20050701
  2. PRILOSEC [Concomitant]
     Route: 048
  3. ASCORBIC ACID [Concomitant]

REACTIONS (1)
  - MULTIPLE SCLEROSIS [None]
